FAERS Safety Report 7518864-1 (Version None)
Quarter: 2011Q2

REPORT INFORMATION
  Report Type: 
  Country: None (occurrence: None)
  Receive Date: 20110602
  Receipt Date: 20110527
  Transmission Date: 20111010
  Serious: Yes (Other)
  Sender: FDA-Public Use
  Company Number: IT-BRISTOL-MYERS SQUIBB COMPANY-15791874

PATIENT
  Age: 82 Year
  Sex: Male

DRUGS (3)
  1. ENALAPRIL MALEATE [Concomitant]
     Indication: HYPERTENSION
     Route: 048
     Dates: start: 20110428, end: 20110501
  2. ENOXAPARIN SODIUM [Concomitant]
     Indication: CARDIAC PACEMAKER INSERTION
     Dosage: INJECTABLE SOLUTION, 2 UNITS
     Route: 058
     Dates: start: 20110428, end: 20110430
  3. COUMADIN [Suspect]
     Indication: ATRIAL FIBRILLATION
     Route: 048
     Dates: start: 20110428, end: 20110501

REACTIONS (2)
  - LOCAL SWELLING [None]
  - HAEMATURIA [None]
